FAERS Safety Report 8866177 (Version 2)
Quarter: 2014Q2

REPORT INFORMATION
  Report Type: Report from Study
  Country: CA (occurrence: CA)
  Receive Date: 20121025
  Receipt Date: 20140415
  Transmission Date: 20141212
  Serious: Yes (Other)
  Sender: FDA-Public Use
  Company Number: PHMT2007CA01512

PATIENT
  Sex: Female
  Weight: 84.5 kg

DRUGS (2)
  1. SANDOSTATIN LAR [Suspect]
     Indication: ACROMEGALY
     Dosage: 20 MG, EVERY 4WEEKS
     Route: 030
     Dates: start: 20061103
  2. MICARDISPLUS [Concomitant]

REACTIONS (4)
  - Osteoarthritis [Unknown]
  - Pain [Not Recovered/Not Resolved]
  - Mobility decreased [Not Recovered/Not Resolved]
  - Blood pressure increased [Unknown]
